APPROVED DRUG PRODUCT: GLYNASE
Active Ingredient: GLYBURIDE
Strength: 3MG
Dosage Form/Route: TABLET;ORAL
Application: N020051 | Product #002
Applicant: PFIZER INC
Approved: Mar 4, 1992 | RLD: Yes | RS: No | Type: DISCN